FAERS Safety Report 5316815-1 (Version None)
Quarter: 2007Q2

REPORT INFORMATION
  Report Type: 
  Country: None (occurrence: None)
  Receive Date: 20070501
  Receipt Date: 20070501
  Transmission Date: 20071010
  Serious: Yes (Hospitalization)
  Sender: FDA-Public Use
  Company Number: None

PATIENT
  Age: 46 Year
  Sex: Female

DRUGS (1)
  1. COMPOSITE EMAGRECEDOR [Suspect]
     Indication: WEIGHT CONTROL

REACTIONS (2)
  - DIABETIC KETOACIDOSIS [None]
  - WEIGHT DECREASED [None]
